FAERS Safety Report 5990708-9 (Version None)
Quarter: 2008Q4

REPORT INFORMATION
  Report Type: 
  Country: None (occurrence: None)
  Receive Date: 20081211
  Receipt Date: 20081203
  Transmission Date: 20090506
  Serious: Yes (Other)
  Sender: FDA-Public Use
  Company Number: PHHY2008JP29903

PATIENT
  Sex: Male

DRUGS (5)
  1. DIOVAN [Suspect]
     Dosage: UNK
     Route: 048
  2. ONON [Concomitant]
     Dosage: UNK
  3. ADALAT CC [Concomitant]
     Dosage: UNK
  4. RABEPRAZOLE SODIUM [Concomitant]
     Dosage: UNK
  5. CINAL [Concomitant]
     Dosage: UNK

REACTIONS (1)
  - HAEMORRHAGE [None]
